FAERS Safety Report 7635081-5 (Version None)
Quarter: 2011Q3

REPORT INFORMATION
  Report Type: 
  Country: None (occurrence: None)
  Receive Date: 20110718
  Receipt Date: 20110706
  Transmission Date: 20111222
  Serious: Yes (Other)
  Sender: FDA-Public Use
  Company Number: DSA_47120_2011

PATIENT
  Sex: Female

DRUGS (1)
  1. ELIDEL [Suspect]
     Indication: ECZEMA
     Dosage: (TWICE A DAY TOPICAL)
     Route: 061

REACTIONS (4)
  - PRODUCT QUALITY ISSUE [None]
  - FALL [None]
  - RIB FRACTURE [None]
  - EXPIRED DRUG ADMINISTERED [None]
